FAERS Safety Report 10477286 (Version 2)
Quarter: 2014Q4

REPORT INFORMATION
  Report Type: Spontaneous
  Country: CA (occurrence: None)
  Receive Date: 20140923
  Receipt Date: 20141118
  Transmission Date: 20150528
  Serious: Yes (Hospitalization)
  Sender: FDA-Public Use
  Company Number: 2014MPI01152

PATIENT
  Age: 26 Year
  Sex: Male
  Weight: 59 kg

DRUGS (12)
  1. BRENTUXIMAB VEDOTIN [Suspect]
     Active Substance: BRENTUXIMAB VEDOTIN
     Indication: HODGKIN^S DISEASE
     Route: 042
     Dates: start: 20140520, end: 20140827
  2. DULCOLAX (BISACODYL) [Concomitant]
     Active Substance: BISACODYL
  3. VINBLASTINE SULFATE. [Suspect]
     Active Substance: VINBLASTINE SULFATE
     Indication: HODGKIN^S DISEASE
     Route: 042
     Dates: start: 20140520, end: 20140827
  4. ONDANSETRON. [Concomitant]
     Active Substance: ONDANSETRON
  5. DACARBAZINE. [Suspect]
     Active Substance: DACARBAZINE
     Indication: HODGKIN^S DISEASE
     Route: 042
     Dates: start: 20140520, end: 20140827
  6. DOXORUBICIN [Suspect]
     Active Substance: DOXORUBICIN
     Indication: HODGKIN^S DISEASE
     Route: 042
     Dates: start: 20140520, end: 20140827
  7. NEUPOGEN (FILGRASTIM) [Concomitant]
     Active Substance: FILGRASTIM
  8. CLOBETASOL (CLOBETASOL PROPIONATE) [Concomitant]
  9. DEXAMETHASONE (DEXAMETHASONE SODIUM PHOSPHATE) [Concomitant]
  10. COLACE [Concomitant]
     Active Substance: DOCUSATE SODIUM
  11. PROTONIC (TACROLIMUS) [Concomitant]
  12. METOCLOPRAMIDE (METOCLOPRAMIDE HYDROCHLORIDE) [Concomitant]

REACTIONS (8)
  - Eczema [None]
  - Rash erythematous [None]
  - Respiratory failure [None]
  - Acute respiratory distress syndrome [None]
  - Pneumonia [None]
  - Hypoxia [None]
  - Fatigue [None]
  - Alopecia [None]

NARRATIVE: CASE EVENT DATE: 20140907
